FAERS Safety Report 13571981 (Version 1)
Quarter: 2017Q2

REPORT INFORMATION
  Report Type: Spontaneous
  Country: DE (occurrence: DE)
  Receive Date: 20170523
  Receipt Date: 20170523
  Transmission Date: 20170830
  Serious: Yes (Other)
  Sender: FDA-Public Use
  Company Number: PHHY2017DE070608

PATIENT
  Sex: Female

DRUGS (1)
  1. TYVERB [Suspect]
     Active Substance: LAPATINIB
     Indication: BREAST CANCER
     Route: 065

REACTIONS (2)
  - Colitis [Unknown]
  - Rash [Not Recovered/Not Resolved]

NARRATIVE: CASE EVENT DATE: 2016
